FAERS Safety Report 6251284-9 (Version None)
Quarter: 2009Q2

REPORT INFORMATION
  Report Type: 
  Country: None (occurrence: None)
  Receive Date: 20090630
  Receipt Date: 20090619
  Transmission Date: 20091009
  Serious: Yes (Other)
  Sender: FDA-Public Use
  Company Number: PHHY2009PL25162

PATIENT
  Age: 60 Year
  Sex: Male

DRUGS (7)
  1. TERBINAFINE HCL [Suspect]
     Indication: ONYCHOMYCOSIS
     Route: 048
  2. METIZOL [Concomitant]
  3. TOLPERISONE [Concomitant]
  4. LANSOPRAZOLE [Concomitant]
  5. PERINDOPRIL [Concomitant]
  6. TRIMETAZIDINE [Concomitant]
  7. BISOPROLOL [Concomitant]

REACTIONS (11)
  - BODY TEMPERATURE INCREASED [None]
  - ERYTHEMA [None]
  - EYE SWELLING [None]
  - GLOSSITIS [None]
  - OEDEMA [None]
  - PHARYNGITIS [None]
  - PHOTOSENSITIVITY REACTION [None]
  - RASH PRURITIC [None]
  - RHINORRHOEA [None]
  - SKIN EXFOLIATION [None]
  - UPPER RESPIRATORY TRACT INFECTION [None]
